FAERS Safety Report 14699103 (Version 2)
Quarter: 2019Q1

REPORT INFORMATION
  Report Type: Spontaneous
  Country: ES (occurrence: ES)
  Receive Date: 20180330
  Receipt Date: 20190115
  Transmission Date: 20190417
  Serious: Yes (Hospitalization, Other)
  Sender: FDA-Public Use
  Company Number: ES-MYLANLABS-2018M1019601

PATIENT
  Age: 14 Year
  Sex: Female

DRUGS (16)
  1. XYREM [Suspect]
     Active Substance: SODIUM OXYBATE
     Indication: CATAPLEXY
     Dosage: LOW DOSE
     Dates: start: 201406, end: 201406
  2. METHYLPHENIDATE HYDROCHLORIDE. [Concomitant]
     Active Substance: METHYLPHENIDATE HYDROCHLORIDE
     Indication: ATTENTION DEFICIT/HYPERACTIVITY DISORDER
     Dosage: UNK
     Dates: start: 2011
  3. HALOPERIDOL. [Suspect]
     Active Substance: HALOPERIDOL
     Dosage: BETWEEN 1 MG/DAY AND 3 MG/DAY
     Route: 065
  4. RISPERIDONE. [Suspect]
     Active Substance: RISPERIDONE
     Indication: HALLUCINATION
     Dosage: 0.5 MILLIGRAM, QD
     Route: 065
     Dates: start: 201209
  5. MODAFINIL. [Suspect]
     Active Substance: MODAFINIL
     Indication: NARCOLEPSY
     Dosage: 100 MILLIGRAM DAILY
     Route: 065
  6. SODIUM OXYBATE. [Suspect]
     Active Substance: SODIUM OXYBATE
     Dosage: LOW DOSE
     Route: 065
     Dates: start: 201406
  7. VENLAFAXINE [Concomitant]
     Active Substance: VENLAFAXINE HYDROCHLORIDE
     Indication: PRODUCT USED FOR UNKNOWN INDICATION
     Dosage: UNK
  8. MODAFINIL. [Suspect]
     Active Substance: MODAFINIL
     Indication: CATAPLEXY
  9. SODIUM OXYBATE. [Suspect]
     Active Substance: SODIUM OXYBATE
     Indication: NARCOLEPSY
     Dosage: 4 GRAM, QD
     Route: 065
  10. XYREM [Suspect]
     Active Substance: SODIUM OXYBATE
     Indication: NARCOLEPSY
     Dosage: 4 GRAM, QD
  11. BIPERIDEN [Concomitant]
     Active Substance: BIPERIDEN
     Indication: DYSTONIA
     Dosage: 4 MILLIGRAM
  12. HALOPERIDOL. [Suspect]
     Active Substance: HALOPERIDOL
     Indication: HALLUCINATION
     Dosage: 1 MILLIGRAM, QD (BETWEEN 1 MG/DAY AND 3 MG/DAY)
     Route: 065
  13. HALOPERIDOL. [Concomitant]
     Active Substance: HALOPERIDOL
     Indication: DYSPHORIA
     Dosage: 1 MILLIGRAM DAILY
  14. METHYLPHENIDATE HYDROCHLORIDE. [Concomitant]
     Active Substance: METHYLPHENIDATE HYDROCHLORIDE
     Dosage: UNK
     Dates: start: 201601
  15. ARIPIPRAZOLE. [Concomitant]
     Active Substance: ARIPIPRAZOLE
     Indication: PSYCHOTIC DISORDER
     Dosage: UNKNOWN DOSE
  16. HALOPERIDOL. [Concomitant]
     Active Substance: HALOPERIDOL
     Indication: DELUSION

REACTIONS (13)
  - Abnormal behaviour [Recovered/Resolved]
  - Hallucination, auditory [Recovered/Resolved]
  - Delusion [Unknown]
  - Hyperprolactinaemia [Unknown]
  - Somnolence [Unknown]
  - Cataplexy [Unknown]
  - Galactorrhoea [Unknown]
  - Irritability [Recovered/Resolved]
  - Dysphoria [Recovered/Resolved]
  - Weight increased [Unknown]
  - Suicidal ideation [Recovered/Resolved]
  - Dystonia [Unknown]
  - Polycystic ovaries [Unknown]

NARRATIVE: CASE EVENT DATE: 201305
